FAERS Safety Report 15527077 (Version 3)
Quarter: 2018Q4

REPORT INFORMATION
  Report Type: Spontaneous
  Country: GB (occurrence: GB)
  Receive Date: 20181018
  Receipt Date: 20181018
  Transmission Date: 20190205
  Serious: Yes (Death)
  Sender: FDA-Public Use
  Company Number: PHHY2018GB128312

PATIENT
  Age: 77 Year
  Sex: Male

DRUGS (3)
  1. METHYLPREDNISOLONE. [Suspect]
     Active Substance: METHYLPREDNISOLONE
     Indication: PULMONARY FIBROSIS
     Dosage: UNK
     Route: 065
  2. PREDNISOLONE. [Suspect]
     Active Substance: PREDNISOLONE
     Indication: PULMONARY FIBROSIS
     Dosage: UNK
     Route: 065
  3. CYCLOPHOSPHAMIDE. [Suspect]
     Active Substance: CYCLOPHOSPHAMIDE
     Indication: PULMONARY FIBROSIS
     Dosage: UNK (5 CYCLES)
     Route: 042

REACTIONS (4)
  - Pneumomediastinum [Fatal]
  - Therapy non-responder [Unknown]
  - Sepsis [Fatal]
  - Subcutaneous emphysema [Fatal]
